FAERS Safety Report 9972229 (Version 1)
Quarter: 2014Q1

REPORT INFORMATION
  Report Type: Spontaneous
  Country: US (occurrence: None)
  Receive Date: 20140305
  Receipt Date: 20140305
  Transmission Date: 20141002
  Serious: Yes (Life-Threatening, Hospitalization, Disabling, Other)
  Sender: FDA-Public Use
  Company Number: None

PATIENT
  Age: 65 Year
  Sex: Female
  Weight: 78.02 kg

DRUGS (2)
  1. CLONAZEPAM 0.5 TEVA [Suspect]
     Indication: PANIC DISORDER
     Dosage: TAKE 1/4 TABLET
     Route: 048
     Dates: start: 20130805, end: 20140304
  2. CLONAZEPAM 0.5 TEVA [Suspect]
     Indication: POST-TRAUMATIC STRESS DISORDER
     Dosage: TAKE 1/4 TABLET
     Route: 048
     Dates: start: 20130805, end: 20140304

REACTIONS (5)
  - Angina pectoris [None]
  - Transient ischaemic attack [None]
  - Eye movement disorder [None]
  - Eye disorder [None]
  - Hypoaesthesia [None]
